FAERS Safety Report 8253325-6 (Version None)
Quarter: 2012Q2

REPORT INFORMATION
  Report Type: 
  Country: None (occurrence: None)
  Receive Date: 20120402
  Receipt Date: 20120307
  Transmission Date: 20120825
  Serious: No
  Sender: FDA-Public Use
  Company Number: US-AMGEN-USASP2012015146

PATIENT
  Age: 43 Year
  Sex: Male

DRUGS (1)
  1. ENBREL [Suspect]
     Indication: PSORIASIS
     Dosage: 50 MG, QWK
     Dates: start: 20120208

REACTIONS (7)
  - PAIN [None]
  - DYSGEUSIA [None]
  - JOINT LOCK [None]
  - INJECTION SITE VESICLES [None]
  - FEELING HOT [None]
  - DYSPEPSIA [None]
  - INJECTION SITE HAEMATOMA [None]
